FAERS Safety Report 6292540-8 (Version None)
Quarter: 2009Q3

REPORT INFORMATION
  Report Type: 
  Country: None (occurrence: None)
  Receive Date: 20090731
  Receipt Date: 20090728
  Transmission Date: 20100115
  Serious: Yes (Disabling)
  Sender: FDA-Public Use
  Company Number: US-BAYER-200922439NA

PATIENT
  Sex: Male

DRUGS (1)
  1. CIPRO [Suspect]
     Indication: DRUG USE FOR UNKNOWN INDICATION
     Dates: start: 20090501

REACTIONS (2)
  - INFLAMMATION [None]
  - PAIN IN EXTREMITY [None]
